FAERS Safety Report 16335230 (Version 2)
Quarter: 2019Q2

REPORT INFORMATION
  Report Type: Report from Study
  Country: US (occurrence: US)
  Receive Date: 20190521
  Receipt Date: 20190523
  Transmission Date: 20190711
  Serious: Yes (Hospitalization, Other)
  Sender: FDA-Public Use
  Company Number: US-GILEAD-2019-0408907

PATIENT
  Age: 20 Year
  Sex: Female

DRUGS (21)
  1. AZTREONAM LYSINE [Suspect]
     Active Substance: AZTREONAM LYSINE
     Indication: CYSTIC FIBROSIS
     Dosage: 75 MG, TID; 28 DAYS ON, 28 DAYS OFF
     Route: 055
     Dates: start: 20181020
  2. ALBUTEROL [SALBUTAMOL] [Concomitant]
     Active Substance: ALBUTEROL
  3. TRESIBA [Concomitant]
     Active Substance: INSULIN DEGLUDEC
  4. STERILE WATER [Concomitant]
     Active Substance: WATER
  5. ATROVENT [Concomitant]
     Active Substance: IPRATROPIUM BROMIDE
  6. SODIUM CHLORIDE. [Concomitant]
     Active Substance: SODIUM CHLORIDE
  7. FLOVENT [Concomitant]
     Active Substance: FLUTICASONE PROPIONATE
  8. COLISTIMETHATE [COLISTIMETHATE SODIUM] [Concomitant]
  9. LANSOPRAZOLE. [Concomitant]
     Active Substance: LANSOPRAZOLE
  10. VORICONAZOLE. [Concomitant]
     Active Substance: VORICONAZOLE
  11. MONTELUKAST [Concomitant]
     Active Substance: MONTELUKAST SODIUM
  12. PULMOZYME [Concomitant]
     Active Substance: DORNASE ALFA
  13. MVW COMPLETE [Concomitant]
  14. VITAMIN D3 [Concomitant]
     Active Substance: CHOLECALCIFEROL
  15. CREON [Concomitant]
     Active Substance: PANCRELIPASE AMYLASE\PANCRELIPASE LIPASE\PANCRELIPASE PROTEASE
  16. ESCITALOPRAM [Concomitant]
     Active Substance: ESCITALOPRAM OXALATE
  17. SILDENAFIL. [Concomitant]
     Active Substance: SILDENAFIL
  18. AZITHROMYCIN ANHYDROUS. [Concomitant]
     Active Substance: AZITHROMYCIN ANHYDROUS
  19. PRAZOSIN. [Concomitant]
     Active Substance: PRAZOSIN
  20. PREDNISONE. [Concomitant]
     Active Substance: PREDNISONE
  21. ONE TOUCH [Concomitant]
     Active Substance: DEXTROSE

REACTIONS (1)
  - Cystic fibrosis [Unknown]

NARRATIVE: CASE EVENT DATE: 201904
